FAERS Safety Report 10444993 (Version 2)
Quarter: 2015Q1

REPORT INFORMATION
  Report Type: Spontaneous
  Country: US (occurrence: US)
  Receive Date: 20140910
  Receipt Date: 20150123
  Transmission Date: 20150720
  Serious: Yes (Death, Hospitalization, Other)
  Sender: FDA-Public Use
  Company Number: US-009507513-1409USA004481

PATIENT
  Sex: Male
  Weight: 130.16 kg

DRUGS (1)
  1. JANUVIA [Suspect]
     Active Substance: SITAGLIPTIN PHOSPHATE
     Indication: TYPE 2 DIABETES MELLITUS
     Dosage: 50 MG, QD
     Route: 048
     Dates: start: 20120320, end: 20131221

REACTIONS (43)
  - Abnormal behaviour [Unknown]
  - Pancreatic neoplasm [Unknown]
  - Decreased activity [Unknown]
  - Knee operation [Unknown]
  - Anxiety [Unknown]
  - Metastases to lymph nodes [Unknown]
  - Biliary sphincterotomy [Unknown]
  - Gastritis [Unknown]
  - Pancreatic carcinoma [Fatal]
  - Chronic hepatitis C [Not Recovered/Not Resolved]
  - Pancreatic mass [Unknown]
  - Anaemia [Unknown]
  - Decreased appetite [Unknown]
  - Disease complication [Fatal]
  - Metastases to bone [Unknown]
  - Bile duct stent insertion [Unknown]
  - Arthroscopy [Unknown]
  - Hypertension [Unknown]
  - Hypotension [Unknown]
  - Pancreatitis chronic [Not Recovered/Not Resolved]
  - Hyperlipidaemia [Unknown]
  - Pulmonary mass [Unknown]
  - Spinal X-ray abnormal [Unknown]
  - Haematemesis [Unknown]
  - Back pain [Not Recovered/Not Resolved]
  - Malignant melanoma [Unknown]
  - Social avoidant behaviour [Unknown]
  - Personality disorder [Unknown]
  - Schizophrenia [Unknown]
  - Adenocarcinoma [Unknown]
  - Depression [Unknown]
  - Osteoarthritis [Unknown]
  - Malaise [Unknown]
  - Abdominal pain lower [Unknown]
  - Myocardial infarction [Unknown]
  - Pancreatic carcinoma metastatic [Unknown]
  - Diabetic neuropathy [Unknown]
  - Breast mass [Unknown]
  - Metastases to lung [Unknown]
  - Metastases to neck [Unknown]
  - Syncope [Unknown]
  - Fall [Unknown]
  - Insomnia [Unknown]

NARRATIVE: CASE EVENT DATE: 201212
